FAERS Safety Report 9435813 (Version 1)
Quarter: 2013Q3

REPORT INFORMATION
  Report Type: Spontaneous
  Country: CA (occurrence: CA)
  Receive Date: 20130801
  Receipt Date: 20130801
  Transmission Date: 20140515
  Serious: Yes (Other)
  Sender: FDA-Public Use
  Company Number: CA-VERTEX PHARMACEUTICALS INC-2013-008448

PATIENT
  Age: 62 Year
  Sex: Female

DRUGS (5)
  1. INCIVEK [Suspect]
     Indication: HEPATITIS C
     Dosage: UNK
     Route: 048
  2. INCIVEK [Suspect]
     Dosage: UNK
     Route: 048
  3. PEGASYS [Suspect]
     Indication: HEPATITIS C
     Dosage: 1200 MG, QD
  4. PEGASYS [Suspect]
     Dosage: 180 ?G, QW
     Route: 058
  5. PEGASYS [Suspect]
     Dosage: 600 MG, QD

REACTIONS (5)
  - Dyspnoea [Unknown]
  - Erythema [Unknown]
  - Pruritus [Unknown]
  - Rash [Unknown]
  - Rash pustular [Unknown]
